FAERS Safety Report 6233230-7 (Version None)
Quarter: 2009Q2

REPORT INFORMATION
  Report Type: 
  Country: None (occurrence: None)
  Receive Date: 20090617
  Receipt Date: 20090609
  Transmission Date: 20091009
  Serious: Yes (Other)
  Sender: FDA-Public Use
  Company Number: PHHY2009JP23018

PATIENT

DRUGS (2)
  1. NEORAL [Suspect]
     Indication: PSORIASIS
     Dosage: UNK
     Route: 048
     Dates: start: 20081201, end: 20090201
  2. NEORAL [Suspect]
     Dosage: 50 MG, QD
     Route: 048
     Dates: start: 20090201, end: 20090608

REACTIONS (4)
  - DEHYDRATION [None]
  - HEPATIC ENCEPHALOPATHY [None]
  - IMMUNOSUPPRESSANT DRUG LEVEL INCREASED [None]
  - RENAL IMPAIRMENT [None]
